FAERS Safety Report 17543555 (Version 1)
Quarter: 2020Q1

REPORT INFORMATION
  Report Type: Report from Study
  Country: ES (occurrence: ES)
  Receive Date: 20200316
  Receipt Date: 20200316
  Transmission Date: 20200409
  Serious: Yes (Hospitalization)
  Sender: FDA-Public Use
  Company Number: ES-TEVA-2020-ES-1201025

PATIENT
  Age: 85 Year
  Sex: Male

DRUGS (6)
  1. LINEZOLID (1279A) [Suspect]
     Active Substance: LINEZOLID
     Indication: PROSTATITIS
     Route: 048
     Dates: start: 20190816, end: 20190829
  2. LORAZEPAM (1864A) [Concomitant]
     Active Substance: LORAZEPAM
     Indication: INSOMNIA
  3. ENALAPRIL MALEATO (2142MA) [Concomitant]
     Active Substance: ENALAPRIL MALEATE
     Indication: HYPERTENSION
     Dosage: 5 MG
     Route: 048
  4. PIPERACILINA + TAZOBACTAM [Concomitant]
     Active Substance: PIPERACILLIN SODIUM\TAZOBACTAM SODIUM
     Indication: PROSTATITIS
     Dosage: 12 G
     Route: 042
     Dates: start: 20190814, end: 20190816
  5. CIPROFLOXACINO (2049A) [Suspect]
     Active Substance: CIPROFLOXACIN
     Indication: PROSTATITIS
     Dosage: 1 G
     Route: 048
     Dates: start: 20190813, end: 20190829
  6. LINEZOLID (1279A) [Concomitant]
     Active Substance: LINEZOLID
     Indication: PROSTATITIS
     Dosage: 1.2 G
     Route: 042
     Dates: start: 20190814, end: 20190816

REACTIONS (2)
  - Oesophageal candidiasis [Recovered/Resolved]
  - Thrombocytopenia [Recovered/Resolved]

NARRATIVE: CASE EVENT DATE: 20190830
